FAERS Safety Report 6581043-9 (Version None)
Quarter: 2010Q1

REPORT INFORMATION
  Report Type: 
  Country: None (occurrence: None)
  Receive Date: 20100215
  Receipt Date: 20100201
  Transmission Date: 20100710
  Serious: Yes (Life-Threatening)
  Sender: FDA-Public Use
  Company Number: PHHY2010US05644

PATIENT
  Sex: Female

DRUGS (4)
  1. RECLAST [Suspect]
     Dosage: UNK
     Dates: start: 20100128
  2. PHENOBARBITAL TAB [Concomitant]
  3. IDERAL [Concomitant]
  4. SYNTHROID [Concomitant]

REACTIONS (6)
  - DYSPNOEA [None]
  - EYE DISORDER [None]
  - FEELING ABNORMAL [None]
  - INFLUENZA LIKE ILLNESS [None]
  - PALPITATIONS [None]
  - PYREXIA [None]
